FAERS Safety Report 25475730 (Version 1)
Quarter: 2025Q2

REPORT INFORMATION
  Report Type: Spontaneous
  Country: CN (occurrence: CN)
  Receive Date: 20250624
  Receipt Date: 20250624
  Transmission Date: 20250716
  Serious: Yes (Hospitalization)
  Sender: JIANGSU HENGRUI
  Company Number: CN-JIANGSU HENGRUI PHARMACEUTICALS CO., LTD.-H2025220583

PATIENT
  Age: 48 Year
  Weight: 70 kg

DRUGS (3)
  1. PACLITAXEL [Suspect]
     Active Substance: PACLITAXEL
     Indication: Pancreatic carcinoma
  2. GEMCITABINE HYDROCHLORIDE [Suspect]
     Active Substance: GEMCITABINE HYDROCHLORIDE
     Indication: Pancreatic carcinoma
  3. SINTILIMAB [Concomitant]
     Active Substance: SINTILIMAB
     Indication: Pancreatic carcinoma

REACTIONS (2)
  - Hypochloraemia [Recovering/Resolving]
  - Hypokalaemia [Recovering/Resolving]
